FAERS Safety Report 5958776-8 (Version None)
Quarter: 2008Q4

REPORT INFORMATION
  Report Type: 
  Country: None (occurrence: None)
  Receive Date: 20081119
  Receipt Date: 20081112
  Transmission Date: 20090506
  Serious: Yes (Other)
  Sender: FDA-Public Use
  Company Number: US-GENENTECH-271551

PATIENT

DRUGS (1)
  1. AVASTIN [Suspect]
     Indication: DRUG USE FOR UNKNOWN INDICATION

REACTIONS (2)
  - ENCEPHALOPATHY [None]
  - LEUKAEMIA [None]
